FAERS Safety Report 17758802 (Version 1)
Quarter: 2020Q2

REPORT INFORMATION
  Report Type: Spontaneous
  Country: US (occurrence: US)
  Receive Date: 20200507
  Receipt Date: 20200507
  Transmission Date: 20200714
  Serious: No
  Sender: FDA-Public Use
  Company Number: US-GLENMARK PHARMACEUTICALS-2020GMK046701

PATIENT

DRUGS (1)
  1. FLUOCINOLONE ACETONIDE 0.01% TOPICAL OIL (SCALP OIL) [Suspect]
     Active Substance: FLUOCINOLONE ACETONIDE
     Indication: DANDRUFF
     Dosage: UNK
     Route: 065
     Dates: start: 2020

REACTIONS (1)
  - Drug effective for unapproved indication [Unknown]

NARRATIVE: CASE EVENT DATE: 2020
